FAERS Safety Report 6405641-8 (Version None)
Quarter: 2009Q4

REPORT INFORMATION
  Report Type: 
  Country: None (occurrence: None)
  Receive Date: 20091019
  Receipt Date: 20091014
  Transmission Date: 20100525
  Serious: Yes (Death, Hospitalization)
  Sender: FDA-Public Use
  Company Number: A0812229A

PATIENT
  Sex: Female

DRUGS (2)
  1. TYKERB [Suspect]
     Route: 048
     Dates: start: 20081001, end: 20081207
  2. CAPECITABINE [Suspect]
     Route: 065
     Dates: start: 20060501, end: 20081207

REACTIONS (2)
  - ADVERSE EVENT [None]
  - DEATH [None]
